FAERS Safety Report 15622584 (Version 1)
Quarter: 2018Q4

REPORT INFORMATION
  Report Type: Spontaneous
  Country: FR (occurrence: FR)
  Receive Date: 20181115
  Receipt Date: 20181115
  Transmission Date: 20190205
  Serious: Yes (Hospitalization)
  Sender: FDA-Public Use
  Company Number: FR-TEVA-2018-FR-974765

PATIENT
  Age: 71 Year
  Sex: Male
  Weight: 60 kg

DRUGS (10)
  1. CRESTOR [Suspect]
     Active Substance: ROSUVASTATIN CALCIUM
     Indication: DYSLIPIDAEMIA
     Dosage: 1 DOSAGE FORMS DAILY;
     Route: 048
     Dates: start: 2000, end: 20160325
  2. KARDEGIC [Concomitant]
     Active Substance: ASPIRIN DL-LYSINE
  3. NATISPRAY [Concomitant]
     Active Substance: NITROGLYCERIN
  4. ISOPTINE [Concomitant]
     Active Substance: VERAPAMIL HYDROCHLORIDE
  5. ALLOPURINOL. [Suspect]
     Active Substance: ALLOPURINOL
     Indication: GOUT
     Dosage: 100 MILLIGRAM DAILY;
     Route: 048
     Dates: start: 2010, end: 20160325
  6. LASILIX 40 MG, COMPRIM? S?CABLE [Suspect]
     Active Substance: FUROSEMIDE
     Indication: HYPERTENSION
     Dosage: 1 DOSAGE FORMS DAILY;
     Route: 048
     Dates: start: 2000, end: 20160325
  7. UROREC [Concomitant]
     Active Substance: SILODOSIN
  8. PREVISCAN 20 MG, COMPRIM? S?CABLE [Concomitant]
     Active Substance: FLUINDIONE
  9. CORVASAL [Concomitant]
  10. COZAAR 50 MG, COMPRIM? ENROB? S?CABLE [Suspect]
     Active Substance: LOSARTAN POTASSIUM
     Indication: HYPERTENSION
     Dosage: 1 DOSAGE FORMS DAILY;
     Route: 048
     Dates: start: 2000, end: 20160325

REACTIONS (3)
  - Acute kidney injury [Recovered/Resolved]
  - Hyponatraemia [Recovering/Resolving]
  - Hyperkalaemia [Recovered/Resolved]

NARRATIVE: CASE EVENT DATE: 20160325
